FAERS Safety Report 5492976-9 (Version None)
Quarter: 2007Q4

REPORT INFORMATION
  Report Type: 
  Country: None (occurrence: None)
  Receive Date: 20071023
  Receipt Date: 20071019
  Transmission Date: 20080405
  Serious: Yes (Hospitalization, Other)
  Sender: FDA-Public Use
  Company Number: US-BRISTOL-MYERS SQUIBB COMPANY-13923750

PATIENT
  Age: 56 Year
  Sex: Male

DRUGS (8)
  1. PRAVASTATIN SODIUM [Suspect]
     Indication: HYPERLIPIDAEMIA
     Route: 048
     Dates: start: 20070719, end: 20070825
  2. LASIX [Concomitant]
  3. DIOVAN [Concomitant]
  4. POTASSIUM CHLORIDE [Concomitant]
  5. PAROXETINE [Concomitant]
  6. PREDNISONE [Concomitant]
  7. ASPIRIN [Concomitant]
  8. ATENOLOL [Concomitant]

REACTIONS (2)
  - ANAEMIA [None]
  - MYOCARDIAL INFARCTION [None]
